FAERS Safety Report 16648077 (Version 1)
Quarter: 2019Q3

REPORT INFORMATION
  Report Type: Spontaneous
  Country: DE (occurrence: DE)
  Receive Date: 20190730
  Receipt Date: 20190730
  Transmission Date: 20191004
  Serious: Yes (Other)
  Sender: FDA-Public Use
  Company Number: DE-ROCHE-2362747

PATIENT
  Sex: Female

DRUGS (14)
  1. BETAFERON [Concomitant]
     Active Substance: INTERFERON BETA-1B
     Route: 065
     Dates: start: 201207, end: 201307
  2. PREDNISOLONE. [Concomitant]
     Active Substance: PREDNISOLONE
     Route: 048
     Dates: start: 20171112
  3. TETRABENAZINE. [Concomitant]
     Active Substance: TETRABENAZINE
     Dosage: 25 MG-0-50 MG
     Route: 065
  4. ACETAMINOPHEN. [Concomitant]
     Active Substance: ACETAMINOPHEN
     Route: 065
  5. COPAXONE [Concomitant]
     Active Substance: GLATIRAMER ACETATE
     Route: 065
     Dates: start: 201804, end: 201902
  6. ZINBRYTA [Concomitant]
     Active Substance: DACLIZUMAB
     Dosage: 2 TIMES
     Route: 058
     Dates: start: 201706, end: 20170704
  7. RITUXAN [Suspect]
     Active Substance: RITUXIMAB
     Indication: MULTIPLE SCLEROSIS
     Route: 065
  8. LORAZEPAM. [Concomitant]
     Active Substance: LORAZEPAM
     Dosage: REDUCE THE REDUCTION INTERVALS BY ONE 0.5 MG TABLET EACH WEEK AND THEN DISCONTINUE
     Route: 065
  9. ALL OTHER THERAPEUTIC PRODUCTS [Concomitant]
     Active Substance: UNSPECIFIED INGREDIENT
     Dosage: 6 TIMES
     Route: 065
     Dates: start: 20131107, end: 20171113
  10. TECFIDERA [Concomitant]
     Active Substance: DIMETHYL FUMARATE
     Route: 065
     Dates: start: 2014, end: 201706
  11. IMMUNOGLOBULINS [Concomitant]
     Dosage: 05/06 NOV 2017
     Route: 065
  12. QUETIAPINE. [Concomitant]
     Active Substance: QUETIAPINE
     Dosage: 2X 50 MG, AFTER 4 DAYS REDUCTION TO 1X 50 MG, AFTER 4 DAYS DISCONTINUE.
     Route: 065
  13. TAVOR (LORAZEPAM) [Concomitant]
     Active Substance: LORAZEPAM
     Dosage: 1-0-0-1 AND FROM 12/FEB/2018 CHANGE TO 0-0-0-1.
     Route: 065
  14. PREDNISOLONE. [Concomitant]
     Active Substance: PREDNISOLONE
     Route: 048
     Dates: start: 20171121

REACTIONS (1)
  - Ataxia [Unknown]
